FAERS Safety Report 8004780-8 (Version None)
Quarter: 2011Q4

REPORT INFORMATION
  Report Type: 
  Country: None (occurrence: None)
  Receive Date: 20111223
  Receipt Date: 20111221
  Transmission Date: 20120403
  Serious: Yes (Life-Threatening, Hospitalization)
  Sender: FDA-Public Use
  Company Number: FR-BRISTOL-MYERS SQUIBB COMPANY-16311367

PATIENT
  Age: 46 Year
  Sex: Male

DRUGS (12)
  1. NAPROXEN [Suspect]
     Indication: NECK PAIN
     Route: 048
     Dates: start: 20110906, end: 20110911
  2. ABILIFY [Suspect]
     Route: 048
     Dates: end: 20110911
  3. ZESTORETIC [Suspect]
     Dosage: 20 MG/12.5 MG,1 DF : 1TAB,SCORED TABLET
     Route: 048
     Dates: end: 20110911
  4. ACETAMINOPHEN AND TRAMADOL HCL [Suspect]
     Indication: NECK PAIN
     Route: 048
     Dates: start: 20110906, end: 20110911
  5. NEURONTIN [Concomitant]
  6. OXAZEPAM [Concomitant]
  7. CREON [Concomitant]
  8. BISOPROLOL FUMARATE [Suspect]
     Dosage: FILM-COATED SCORED TABLET
     Route: 048
     Dates: end: 20110911
  9. ASPIRIN [Suspect]
     Dosage: POWDER FOR ORAL SOLUTION IN PACKETS
     Route: 048
     Dates: end: 20110911
  10. ATARAX [Suspect]
     Route: 048
     Dates: end: 20110911
  11. ATORVASTATIN CALCIUM [Concomitant]
  12. OMEPRAZOLE [Concomitant]

REACTIONS (2)
  - ANURIA [None]
  - RENAL FAILURE ACUTE [None]
